FAERS Safety Report 8305909-4 (Version None)
Quarter: 2012Q1

REPORT INFORMATION
  Report Type: 
  Country: None (occurrence: None)
  Receive Date: 20120326
  Receipt Date: 20110810
  Transmission Date: 20120608
  Serious: Yes (Other)
  Sender: FDA-Public Use
  Company Number: PHEH2011US01238

PATIENT
  Age: 58 Year
  Sex: Female

DRUGS (3)
  1. MOTRIN [Concomitant]
  2. AMBIEN [Suspect]
     Dosage: 1 DF, QD ; 2 DF
  3. VIVELLE-DOT [Suspect]
     Dosage: 0.1 MG, QW2, TRANSDERMAL
     Route: 062

REACTIONS (4)
  - BREAST CANCER [None]
  - SLEEP DISORDER [None]
  - NIGHT SWEATS [None]
  - MALAISE [None]
